FAERS Safety Report 7502947-6 (Version None)
Quarter: 2011Q2

REPORT INFORMATION
  Report Type: 
  Country: None (occurrence: None)
  Receive Date: 20110525
  Receipt Date: 20110516
  Transmission Date: 20111010
  Serious: Yes (Other)
  Sender: FDA-Public Use
  Company Number: US-ASTRAZENECA-2011SE24307

PATIENT
  Age: 87 Year
  Sex: Male

DRUGS (2)
  1. CIPRO [Concomitant]
  2. NEXIUM [Suspect]
     Route: 048

REACTIONS (7)
  - HIP FRACTURE [None]
  - BLINDNESS [None]
  - KNEE OPERATION [None]
  - STAPHYLOCOCCAL INFECTION [None]
  - CELLULITIS [None]
  - OROPHARYNGEAL BLISTERING [None]
  - INSOMNIA [None]
